FAERS Safety Report 8880840 (Version 1)
Quarter: 2012Q4

REPORT INFORMATION
  Report Type: 
  Country: US (occurrence: US)
  Receive Date: 20121101
  Receipt Date: 20121101
  Transmission Date: 20130627
  Serious: Yes (Hospitalization)
  Sender: FDA-Public Use
  Company Number: US-AMGEN-USASP2012068803

PATIENT
  Age: 41 Year
  Sex: Female

DRUGS (4)
  1. PROLIA [Suspect]
     Indication: PRODUCT USED FOR UNKNOWN INDICATION
     Dosage: 60 mg, q6mo
     Dates: start: 20121019
  2. CALCITRIOL [Concomitant]
  3. VITAMIN D /00107901/ [Concomitant]
  4. PREDNISONE [Concomitant]

REACTIONS (3)
  - Hypocalcaemia [Recovering/Resolving]
  - Muscle spasms [Unknown]
  - Muscle twitching [Unknown]
